FAERS Safety Report 9434372 (Version 1)
Quarter: 2013Q3

REPORT INFORMATION
  Report Type: Spontaneous
  Country: US (occurrence: None)
  Receive Date: 20130731
  Receipt Date: 20130731
  Transmission Date: 20140515
  Serious: Yes (Other)
  Sender: FDA-Public Use
  Company Number: None

PATIENT
  Age: 58 None
  Sex: Female

DRUGS (1)
  1. SUCRALFATE [Suspect]
     Indication: DYSPHAGIA
     Dosage: 2 TEASPOON 4X DAY PO
     Route: 048
     Dates: start: 20130712, end: 20130713

REACTIONS (1)
  - Unevaluable event [None]
